FAERS Safety Report 7809997-0 (Version None)
Quarter: 2011Q4

REPORT INFORMATION
  Report Type: 
  Country: None (occurrence: None)
  Receive Date: 20111012
  Receipt Date: 20111007
  Transmission Date: 20120403
  Serious: Yes (Other)
  Sender: FDA-Public Use
  Company Number: FR-PFIZER INC-2011239838

PATIENT
  Sex: Male

DRUGS (2)
  1. LYRICA [Suspect]
     Indication: TRIGEMINAL NEURALGIA
     Dosage: 300 MG TO 400 MG/DAY
  2. BISOPROLOL FUMARATE [Concomitant]

REACTIONS (2)
  - CARDIAC FAILURE [None]
  - ARRHYTHMIA [None]
